FAERS Safety Report 15018091 (Version 5)
Quarter: 2018Q3

REPORT INFORMATION
  Report Type: Report from Study
  Country: US (occurrence: US)
  Receive Date: 20180615
  Receipt Date: 20180723
  Transmission Date: 20181010
  Serious: Yes (Death, Life-Threatening, Hospitalization)
  Sender: FDA-Public Use
  Company Number: US-PFIZER INC-2018243469

PATIENT
  Age: 10 Year
  Sex: Male
  Weight: 35.5 kg

DRUGS (23)
  1. SULFAMETHOXAZOLE W/TRIMETHOPRIM [Concomitant]
     Active Substance: SULFAMETHOXAZOLE\TRIMETHOPRIM
     Indication: ANTIFUNGAL PROPHYLAXIS
     Dosage: 1 TAB, BID F, SA, SUN
     Route: 048
  2. KETAMINE [Concomitant]
     Active Substance: KETAMINE
     Dosage: UNK
  3. TEMSIROLIMUS [Suspect]
     Active Substance: TEMSIROLIMUS
     Indication: ACUTE LYMPHOCYTIC LEUKAEMIA
     Dosage: 15 MG/M2, 1X/DAY ON DAY1, DAY8
     Route: 042
     Dates: start: 20180423, end: 20180430
  4. ZOSYN [Concomitant]
     Active Substance: PIPERACILLIN SODIUM\TAZOBACTAM SODIUM
     Indication: FEBRILE NEUTROPENIA
     Dosage: 3000 MG, Q 6H
     Route: 042
  5. LIDOCAINE. [Concomitant]
     Active Substance: LIDOCAINE
     Indication: PAIN
     Dosage: PATCH 5 %, Q24H
     Route: 062
  6. ALLOPURINOL. [Concomitant]
     Active Substance: ALLOPURINOL
     Indication: TUMOUR LYSIS SYNDROME
     Dosage: 100 MG, Q8H
     Route: 048
  7. CHLOROTHIAZIDE. [Concomitant]
     Active Substance: CHLOROTHIAZIDE
     Dosage: UNK
  8. LASIX [Concomitant]
     Active Substance: FUROSEMIDE
     Dosage: 20 MG, Q8H
     Route: 042
  9. ETOPOSIDE. [Suspect]
     Active Substance: ETOPOSIDE
     Indication: ACUTE LYMPHOCYTIC LEUKAEMIA
     Dosage: 100 MG/M2, DAILY X5 ON DAY 1?5
     Route: 042
     Dates: start: 20180423, end: 20180430
  10. CYCLOPHOSPHAMIDE. [Suspect]
     Active Substance: CYCLOPHOSPHAMIDE
     Indication: ACUTE LYMPHOCYTIC LEUKAEMIA
     Dosage: 440 MG/M2, DAILY X5 ON DAY 1?5
     Route: 042
     Dates: start: 20180423, end: 20180430
  11. ONDANSETRON [Concomitant]
     Active Substance: ONDANSETRON
     Indication: NAUSEA
     Dosage: 4 MG, Q8HR
     Route: 048
  12. MICAFUNGIN [Concomitant]
     Active Substance: MICAFUNGIN
     Indication: FUNGAL INFECTION
     Dosage: 100 MG, Q24HP
     Route: 042
  13. METHYLPREDNISOLONE. [Concomitant]
     Active Substance: METHYLPREDNISOLONE
     Dosage: 35 MG, Q 12 H
     Route: 042
  14. ACETAMINOPHEN. [Concomitant]
     Active Substance: ACETAMINOPHEN
     Indication: PAIN
  15. NALBUPHINE [Concomitant]
     Active Substance: NALBUPHINE
     Indication: PRURITUS
     Dosage: 3.5 MG, Q6HR, PRN
     Route: 042
  16. ONDANSETRON [Concomitant]
     Active Substance: ONDANSETRON
     Indication: VOMITING
  17. FAMOTIDINE. [Concomitant]
     Active Substance: FAMOTIDINE
     Indication: GASTROOESOPHAGEAL REFLUX PROPHYLAXIS
     Dosage: 18 MG, Q12H
     Route: 042
  18. DEXMEDETOMIDINE. [Concomitant]
     Active Substance: DEXMEDETOMIDINE
     Dosage: UNK
  19. GABAPENTIN. [Concomitant]
     Active Substance: GABAPENTIN
     Indication: NEURALGIA
     Dosage: 200 MG, TID
     Route: 048
  20. PCA HYDROMORPHONE [Concomitant]
     Indication: PAIN
     Dosage: UNK
  21. AMBISOME [Concomitant]
     Active Substance: AMPHOTERICIN B
     Dosage: 105 MG, Q24H
     Route: 042
  22. VANCOMYCIN [Concomitant]
     Active Substance: VANCOMYCIN
     Indication: STAPHYLOCOCCAL BACTERAEMIA
     Dosage: 12.5 MG/KG/DOSE, Q6H
  23. ACETAMINOPHEN. [Concomitant]
     Active Substance: ACETAMINOPHEN
     Indication: PYREXIA
     Dosage: 325 MG, Q4H PRN
     Route: 048

REACTIONS (6)
  - Respiratory failure [Fatal]
  - Lung infection [Unknown]
  - Pneumonitis [Unknown]
  - Pericardial effusion [Unknown]
  - Cardiac arrest [Fatal]
  - Pleural effusion [Unknown]

NARRATIVE: CASE EVENT DATE: 201805
